FAERS Safety Report 9023467 (Version 1)
Quarter: 2013Q1

REPORT INFORMATION
  Report Type: Spontaneous
  Country: US (occurrence: US)
  Receive Date: 20130121
  Receipt Date: 20130121
  Transmission Date: 20140127
  Serious: No
  Sender: FDA-Public Use
  Company Number: US-OPTIMER PHARMACEUTICALS, INC.-20120165

PATIENT
  Sex: Male
  Weight: 72.11 kg

DRUGS (4)
  1. DIFICID [Suspect]
     Indication: CLOSTRIDIAL INFECTION
     Dosage: 200 MG, BID
     Route: 048
     Dates: start: 20120801, end: 20120810
  2. HUMIRA [Concomitant]
     Indication: CROHN^S DISEASE
     Dosage: 40 MG, WEEKLY
     Route: 042
     Dates: start: 2009
  3. METHOTREXATE [Concomitant]
     Indication: CROHN^S DISEASE
     Dosage: 15 MG, WEEKLY
     Route: 058
     Dates: start: 2009
  4. APRISO [Concomitant]
     Indication: CROHN^S DISEASE
     Dosage: 4.8G, QD
     Route: 048

REACTIONS (2)
  - Clostridium difficile infection [Not Recovered/Not Resolved]
  - Disease recurrence [Not Recovered/Not Resolved]
